FAERS Safety Report 20973337 (Version 2)
Quarter: 2022Q3

REPORT INFORMATION
  Report Type: Spontaneous
  Country: US (occurrence: US)
  Receive Date: 20220617
  Receipt Date: 20220711
  Transmission Date: 20221026
  Serious: Yes (Other)
  Sender: FDA-Public Use
  Company Number: US-BRISTOL-MYERS SQUIBB COMPANY-2022-054697

PATIENT
  Age: 83 Year
  Sex: Male

DRUGS (1)
  1. REVLIMID [Suspect]
     Active Substance: LENALIDOMIDE
     Indication: Product used for unknown indication
     Dosage: TAKE 1 CAPSULE BY MOUTH WHOLE WITH WATER EVERY DAY ON DAYS 1-21 ON A 28 DAY SCHEDULE
     Route: 048
     Dates: start: 20211228

REACTIONS (2)
  - Product dose omission issue [Unknown]
  - Neuropathy peripheral [Unknown]
